FAERS Safety Report 23922227 (Version 1)
Quarter: 2024Q2

REPORT INFORMATION
  Report Type: Spontaneous
  Country: EG (occurrence: EG)
  Receive Date: 20240531
  Receipt Date: 20240531
  Transmission Date: 20240715
  Serious: Yes (Life-Threatening, Disabling)
  Sender: FDA-Public Use
  Company Number: EG-NOVOPROD-1227004

PATIENT
  Sex: Female

DRUGS (1)
  1. ACTRAPID [Suspect]
     Active Substance: INSULIN HUMAN
     Indication: Diabetes mellitus
     Dosage: UNK

REACTIONS (4)
  - Coma [Not Recovered/Not Resolved]
  - Optic atrophy [Unknown]
  - Blindness unilateral [Unknown]
  - Extra dose administered [Not Recovered/Not Resolved]
